FAERS Safety Report 8525754-4 (Version None)
Quarter: 2012Q3

REPORT INFORMATION
  Report Type: 
  Country: None (occurrence: None)
  Receive Date: 20120720
  Receipt Date: 20120718
  Transmission Date: 20120928
  Serious: Yes (Death, Life-Threatening, Hospitalization, Other)
  Sender: FDA-Public Use
  Company Number: DE-MSD-2012SP034464

PATIENT

DRUGS (9)
  1. PEG-INTRON [Suspect]
     Indication: HEPATITIS C
     Dosage: 180 MICG, QW
     Dates: start: 20120105, end: 20120619
  2. COPEGUS [Suspect]
     Indication: HEPATITIS C
     Dosage: 1600 MG
     Dates: start: 20120105, end: 20120619
  3. VICTRELIS [Suspect]
     Indication: HEPATITIS C
     Dosage: 3 X 800
     Dates: start: 20120202, end: 20120619
  4. CITALOPRAM HYDROBROMIDE [Concomitant]
     Indication: DEPRESSION
     Dosage: 20 MG, UNK
     Dates: start: 20120412
  5. HALOPERIDOL [Concomitant]
     Indication: PRODUCT USED FOR UNKNOWN INDICATION
  6. METOCLOPRAMIDE [Concomitant]
     Indication: PRODUCT USED FOR UNKNOWN INDICATION
  7. LERCANIDIPINE [Concomitant]
     Indication: PRODUCT USED FOR UNKNOWN INDICATION
  8. MIRTAZAPIN STADA [Concomitant]
     Indication: DEPRESSION
     Dosage: 15 MG, UNK
     Dates: start: 20120529
  9. RAMIPRIL [Concomitant]
     Indication: PRODUCT USED FOR UNKNOWN INDICATION

REACTIONS (5)
  - RENAL FAILURE [None]
  - HEPATIC FAILURE [None]
  - VOMITING [None]
  - URINARY TRACT INFECTION [None]
  - SEPSIS [None]
